FAERS Safety Report 4892885-X (Version None)
Quarter: 2006Q1

REPORT INFORMATION
  Report Type: 
  Country: None (occurrence: None)
  Receive Date: 20060126
  Receipt Date: 20060124
  Transmission Date: 20060701
  Serious: Yes (Hospitalization)
  Sender: FDA-Public Use
  Company Number: US-MERCK-0601USA02847

PATIENT
  Sex: Male

DRUGS (2)
  1. VIOXX [Suspect]
     Route: 048
     Dates: start: 20030301, end: 20040701
  2. LOTENSIN [Concomitant]
     Route: 065

REACTIONS (2)
  - MONOPARESIS [None]
  - PARAESTHESIA [None]
